FAERS Safety Report 7309402-7 (Version None)
Quarter: 2011Q1

REPORT INFORMATION
  Report Type: 
  Country: None (occurrence: None)
  Receive Date: 20110211
  Receipt Date: 20110131
  Transmission Date: 20110831
  Serious: No
  Sender: FDA-Public Use
  Company Number: US-1184864

PATIENT
  Sex: Female

DRUGS (1)
  1. DIFLUPREDNATE 0.05 % OPHTHALMIC EMULSION [Suspect]
     Dosage: (OPHTHALMIC)
     Route: 047
     Dates: start: 20110105

REACTIONS (2)
  - ULCERATIVE KERATITIS [None]
  - DISEASE PROGRESSION [None]
